FAERS Safety Report 4550592-7 (Version None)
Quarter: 2004Q4

REPORT INFORMATION
  Report Type: 
  Country: None (occurrence: None)
  Receive Date: 20041227
  Receipt Date: 20041103
  Transmission Date: 20050328
  Serious: No
  Sender: FDA-Public Use
  Company Number: 04P-163-0279951-00

PATIENT
  Age: 66 Year
  Sex: Female
  Weight: 84.8226 kg

DRUGS (9)
  1. HUMIRA [Suspect]
     Indication: RHEUMATOID ARTHRITIS
     Dosage: 40 MG, 1IN 2 WK, SUBCUTANEOUS
     Route: 058
     Dates: start: 20040901
  2. PREDNISONE [Concomitant]
  3. NAPROXEN [Concomitant]
  4. OXYCOCET [Concomitant]
  5. FLAXSEED [Concomitant]
  6. MULTI-VITAMINS [Concomitant]
  7. CALCIUM GLUCONATE [Concomitant]
  8. METHOTREXATE SODIUM [Concomitant]
  9. FOLIC ACID [Concomitant]

REACTIONS (3)
  - COUGH [None]
  - PHARYNGOLARYNGEAL PAIN [None]
  - PRURITUS [None]
